FAERS Safety Report 15060896 (Version 4)
Quarter: 2018Q3

REPORT INFORMATION
  Report Type: Spontaneous
  Country: US (occurrence: US)
  Receive Date: 20180625
  Receipt Date: 20180920
  Transmission Date: 20181010
  Serious: Yes (Other)
  Sender: FDA-Public Use
  Company Number: US-PFIZER INC-2018254610

PATIENT
  Age: 81 Year
  Sex: Female

DRUGS (88)
  1. BENAZEPRIL HCL [Concomitant]
     Active Substance: BENAZEPRIL HYDROCHLORIDE
     Dosage: 40 MG, 1X/DAY
     Dates: start: 20060627, end: 20060727
  2. ATENOLOL. [Concomitant]
     Active Substance: ATENOLOL
     Dosage: 100 MG, 1X/DAY
     Dates: start: 20060727, end: 20061121
  3. ATENOLOL. [Concomitant]
     Active Substance: ATENOLOL
     Dosage: 100 MG, 1X/DAY
     Dates: start: 20070904, end: 20080308
  4. MECLIZINE [Concomitant]
     Active Substance: MECLIZINE HYDROCHLORIDE
     Dosage: 12.5 MG, 1/8H AS NEEDED
     Dates: start: 20070823, end: 20070923
  5. HYDROCHLOROTHIAZIDE. [Concomitant]
     Active Substance: HYDROCHLOROTHIAZIDE
     Dosage: 25 MG, 1X/DAY
     Dates: start: 20080409, end: 20080509
  6. AMLODIPINE [Concomitant]
     Active Substance: AMLODIPINE BESYLATE
     Indication: BLOOD PRESSURE ABNORMAL
     Dosage: 10 MG, 1X/DAY
     Dates: start: 20070426, end: 20070923
  7. AMLODIPINE [Concomitant]
     Active Substance: AMLODIPINE BESYLATE
     Dosage: 10 MG, 1X/DAY
     Dates: start: 20080425, end: 20080828
  8. VIGAMOX [Concomitant]
     Active Substance: MOXIFLOXACIN HYDROCHLORIDE
     Indication: EYE OPERATION
     Dosage: 0.5 %, 4X/DAY
     Dates: start: 20080124, end: 20080203
  9. CIPROFLOXACIN HCL [Concomitant]
     Active Substance: CIPROFLOXACIN HYDROCHLORIDE
     Indication: INFECTION
     Dosage: 250 MG, 2X/DAY
     Dates: start: 20080319, end: 20080419
  10. PROPOXYPHEN?APAP [Concomitant]
     Indication: PAIN
     Dosage: UNK, 2X/DAY (100?650 MG)
     Dates: start: 20080513, end: 20080613
  11. GABAPENTIN. [Concomitant]
     Active Substance: GABAPENTIN
     Dosage: 300 MG, 1X/DAY
     Dates: start: 20080717, end: 20080914
  12. NEURONTIN [Concomitant]
     Active Substance: GABAPENTIN
     Dosage: UNK
  13. NAPROXEN. [Concomitant]
     Active Substance: NAPROXEN
     Dosage: 500 MG, 2X/DAY
     Dates: start: 20060921, end: 20061230
  14. BENAZEPRIL HCL [Concomitant]
     Active Substance: BENAZEPRIL HYDROCHLORIDE
     Dosage: 40 MG, 1X/DAY
     Dates: start: 20080404, end: 20080504
  15. CYCLOBENZAPRINE. [Concomitant]
     Active Substance: CYCLOBENZAPRINE
     Indication: MUSCLE SPASMS
     Dosage: 10 MG, 3X/DAY
     Dates: start: 20060330, end: 20060419
  16. HYDROCHLOROTHIAZIDE. [Concomitant]
     Active Substance: HYDROCHLOROTHIAZIDE
     Dosage: 25 MG, 1X/DAY
     Dates: start: 20070426, end: 20070827
  17. AMLODIPINE [Concomitant]
     Active Substance: AMLODIPINE BESYLATE
     Dosage: 10 MG, 1X/DAY
     Dates: start: 20080826, end: 20081026
  18. PRAVASTATIN NA [Concomitant]
     Active Substance: PRAVASTATIN SODIUM
     Indication: BLOOD CHOLESTEROL ABNORMAL
     Dosage: 20 MG, UNK1/2 TAB / 2 DAYS
     Dates: start: 20080418, end: 20081011
  19. TRAMADOL?ACETAMINOPHEN [Concomitant]
     Active Substance: ACETAMINOPHEN\TRAMADOL
     Indication: PAIN
     Dosage: 37.5 MG, 1?2 /4 HR
     Dates: start: 20080717, end: 20080914
  20. LOPID [Concomitant]
     Active Substance: GEMFIBROZIL
     Dosage: UNK
  21. NAPROXEN. [Concomitant]
     Active Substance: NAPROXEN
     Dosage: 500 MG, 2X/DAY
     Dates: start: 20060602, end: 20060702
  22. NAPROXEN. [Concomitant]
     Active Substance: NAPROXEN
     Dosage: 500 MG, 2X/DAY
     Dates: start: 20060728, end: 20060828
  23. BENAZEPRIL HCL [Concomitant]
     Active Substance: BENAZEPRIL HYDROCHLORIDE
     Indication: BLOOD PRESSURE ABNORMAL
     Dosage: 40 MG, 1X/DAY
     Dates: start: 20060123, end: 20060321
  24. BENAZEPRIL HCL [Concomitant]
     Active Substance: BENAZEPRIL HYDROCHLORIDE
     Dosage: 40 MG, 1X/DAY
     Dates: start: 20060727, end: 20061027
  25. BENAZEPRIL HCL [Concomitant]
     Active Substance: BENAZEPRIL HYDROCHLORIDE
     Dosage: 40 MG, 1X/DAY
     Dates: start: 20061102, end: 20070330
  26. BENAZEPRIL HCL [Concomitant]
     Active Substance: BENAZEPRIL HYDROCHLORIDE
     Dosage: 40 MG, 1X/DAY
     Dates: start: 20070831, end: 20080301
  27. BENAZEPRIL HCL [Concomitant]
     Active Substance: BENAZEPRIL HYDROCHLORIDE
     Dosage: 40 MG, 1X/DAY
     Dates: start: 20080304, end: 20080404
  28. EVISTA [Concomitant]
     Active Substance: RALOXIFENE HYDROCHLORIDE
     Dosage: 60 MG, 1X/DAY
     Dates: start: 20060503, end: 20060819
  29. ATENOLOL. [Concomitant]
     Active Substance: ATENOLOL
     Dosage: 100 MG, 1X/DAY
     Dates: start: 20061205, end: 20070408
  30. METHYLPREDNISOLONE. [Concomitant]
     Active Substance: METHYLPREDNISOLONE
     Dosage: 4 MG, UNK
     Dates: start: 20060329, end: 20060404
  31. NORVASC [Concomitant]
     Active Substance: AMLODIPINE BESYLATE
     Indication: BLOOD PRESSURE ABNORMAL
     Dosage: 10 MG, 1X/DAY
     Dates: start: 20060406, end: 20060712
  32. ANTARA [Concomitant]
     Active Substance: FENOFIBRATE
     Dosage: 130 MG, 1X/DAY
     Dates: start: 20080311, end: 20080411
  33. HYDROCHLOROTHIAZIDE. [Concomitant]
     Active Substance: HYDROCHLOROTHIAZIDE
     Dosage: 25 MG, 1X/DAY
     Dates: start: 20061025, end: 20070416
  34. PRILOSEC [Suspect]
     Active Substance: OMEPRAZOLE MAGNESIUM
     Dosage: UNK
  35. LIPITOR [Concomitant]
     Active Substance: ATORVASTATIN CALCIUM
     Indication: BLOOD CHOLESTEROL ABNORMAL
     Dosage: UNK
  36. PLAVIX [Concomitant]
     Active Substance: CLOPIDOGREL BISULFATE
     Dosage: UNK
  37. EVISTA [Concomitant]
     Active Substance: RALOXIFENE HYDROCHLORIDE
     Dosage: 60 MG, 1X/DAY
     Dates: end: 20070408
  38. EVISTA [Concomitant]
     Active Substance: RALOXIFENE HYDROCHLORIDE
     Dosage: 60 MG, 1X/DAY
     Dates: start: 20070403, end: 20070908
  39. EVISTA [Concomitant]
     Active Substance: RALOXIFENE HYDROCHLORIDE
     Dosage: 60 MG, 1X/DAY
     Dates: start: 20080320, end: 20080420
  40. EVISTA [Concomitant]
     Active Substance: RALOXIFENE HYDROCHLORIDE
     Dosage: 60 MG, 1X/DAY
     Dates: start: 20080418, end: 20080920
  41. ATENOLOL. [Concomitant]
     Active Substance: ATENOLOL
     Dosage: 100 MG, 1X/DAY
     Dates: start: 20070403, end: 20070908
  42. NORVASC [Concomitant]
     Active Substance: AMLODIPINE BESYLATE
     Dosage: 10 MG, 1X/DAY
     Dates: start: 20060918, end: 20061018
  43. ANTARA [Concomitant]
     Active Substance: FENOFIBRATE
     Dosage: 130 MG, 1X/DAY
     Dates: start: 20070403, end: 20070825
  44. HYDROCHLOROTHIAZIDE. [Concomitant]
     Active Substance: HYDROCHLOROTHIAZIDE
     Dosage: 25 MG, 1X/DAY
     Dates: start: 20080512, end: 20080817
  45. AMLODIPINE [Concomitant]
     Active Substance: AMLODIPINE BESYLATE
     Dosage: 10 MG, 1X/DAY
     Dates: start: 20070924, end: 20080310
  46. AZITHROMYCIN ANHYDROUS. [Concomitant]
     Active Substance: AZITHROMYCIN ANHYDROUS
     Dosage: 250 MG, UNK
  47. PREDNISONE. [Concomitant]
     Active Substance: PREDNISONE
     Dosage: 10 MG, UNK
  48. LIPITOR [Concomitant]
     Active Substance: ATORVASTATIN CALCIUM
     Dosage: 20 MG, 1X/DAY
     Dates: start: 20060921, end: 20070427
  49. LIPITOR [Concomitant]
     Active Substance: ATORVASTATIN CALCIUM
     Dosage: 20 MG, 1X/DAY
     Dates: start: 20070924, end: 20071024
  50. NAPROXEN. [Concomitant]
     Active Substance: NAPROXEN
     Dosage: 500 MG, 1X/DAY
     Dates: start: 20070329, end: 20071226
  51. EVISTA [Concomitant]
     Active Substance: RALOXIFENE HYDROCHLORIDE
     Dosage: 60 MG, 1X/DAY
     Dates: start: 20060131, end: 20060327
  52. ANTARA [Concomitant]
     Active Substance: FENOFIBRATE
     Dosage: 130 MG, 1X/DAY
     Dates: start: 20060406, end: 20060712
  53. HYDROCHLOROTHIAZIDE. [Concomitant]
     Active Substance: HYDROCHLOROTHIAZIDE
     Indication: FLUID RETENTION
     Dosage: 25 MG, 1X/DAY
     Dates: start: 20060503, end: 20060815
  54. UREA LOTION [Concomitant]
     Dosage: 40 %, 2X/DAY
  55. LEXAPRO [Concomitant]
     Active Substance: ESCITALOPRAM OXALATE
     Dosage: 10 MG, 1X/DAY
     Dates: start: 20070327, end: 20080411
  56. DOXYCYCLINE HYCLATE. [Concomitant]
     Active Substance: DOXYCYCLINE HYCLATE
     Indication: INFECTION
     Dosage: 100 MG, 2X/DAY
     Dates: start: 20080110, end: 20080210
  57. LIPITOR [Concomitant]
     Active Substance: ATORVASTATIN CALCIUM
     Dosage: 20 MG, 1X/DAY
     Dates: start: 20060421, end: 20060727
  58. LIPITOR [Concomitant]
     Active Substance: ATORVASTATIN CALCIUM
     Dosage: 20 MG, 1X/DAY
     Dates: start: 20070426, end: 20070923
  59. PROCARDIA XL [Concomitant]
     Active Substance: NIFEDIPINE
     Dosage: UNK
  60. BENAZEPRIL HCL [Concomitant]
     Active Substance: BENAZEPRIL HYDROCHLORIDE
     Dosage: 40 MG, 1X/DAY
     Dates: start: 20060321, end: 20060619
  61. BENAZEPRIL HCL [Concomitant]
     Active Substance: BENAZEPRIL HYDROCHLORIDE
     Dosage: 40 MG, 1X/DAY
     Dates: start: 20070502, end: 20070824
  62. NORVASC [Concomitant]
     Active Substance: AMLODIPINE BESYLATE
     Dosage: 10 MG, 1X/DAY
     Dates: start: 20060719, end: 20060919
  63. ANTARA [Concomitant]
     Active Substance: FENOFIBRATE
     Dosage: 130 MG, 1X/DAY
     Dates: start: 20061025, end: 20070402
  64. ANTARA [Concomitant]
     Active Substance: FENOFIBRATE
     Dosage: 130 MG, 1X/DAY
     Dates: start: 20080409, end: 20080509
  65. ANTARA [Concomitant]
     Active Substance: FENOFIBRATE
     Dosage: 130 MG, 1X/DAY
     Dates: start: 20080512, end: 20080904
  66. HYDROCHLOROTHIAZIDE. [Concomitant]
     Active Substance: HYDROCHLOROTHIAZIDE
     Dosage: 25 MG, 1X/DAY
     Dates: start: 20060907, end: 20061007
  67. GABAPENTIN. [Concomitant]
     Active Substance: GABAPENTIN
     Dosage: 300 MG, 1X/DAY
     Dates: start: 20080709, end: 20080809
  68. BENAZEPRIL HCL [Concomitant]
     Active Substance: BENAZEPRIL HYDROCHLORIDE
     Dosage: 40 MG, 1X/DAY
     Dates: start: 20080502, end: 20080904
  69. MECLIZINE [Concomitant]
     Active Substance: MECLIZINE HYDROCHLORIDE
     Indication: DIZZINESS
     Dosage: 12.5 MG, 1/8H AS NEEDED
     Dates: start: 20060215, end: 20060307
  70. NORVASC [Concomitant]
     Active Substance: AMLODIPINE BESYLATE
     Dosage: 10 MG, 1X/DAY
     Dates: start: 20061017, end: 20070427
  71. MOBIC [Concomitant]
     Active Substance: MELOXICAM
     Indication: INFLAMMATORY PAIN
     Dosage: 15 MG, 1X/DAY
  72. ANTARA [Concomitant]
     Active Substance: FENOFIBRATE
     Dosage: 130 MG, 1X/DAY
     Dates: start: 20070831, end: 20080308
  73. GFN/ PHENYLEPHRINE [Concomitant]
     Indication: COUGH
     Dosage: UNK, 2X/DAY
     Dates: start: 20080110, end: 20080210
  74. NEXIUM [Suspect]
     Active Substance: ESOMEPRAZOLE MAGNESIUM
     Dosage: UNK
  75. PROTONIX [Suspect]
     Active Substance: PANTOPRAZOLE SODIUM
     Dosage: UNK
  76. CATAPRES [Concomitant]
     Active Substance: CLONIDINE HYDROCHLORIDE
     Dosage: UNK
  77. NAPROXEN. [Concomitant]
     Active Substance: NAPROXEN
     Indication: INFLAMMATORY PAIN
     Dosage: 500 MG, 2X/DAY
     Dates: start: 20060316, end: 20060416
  78. NAPROXEN. [Concomitant]
     Active Substance: NAPROXEN
     Dosage: 500 MG, 1X/DAY
     Dates: start: 20080102, end: 20080202
  79. EVISTA [Concomitant]
     Active Substance: RALOXIFENE HYDROCHLORIDE
     Dosage: 60 MG, 1X/DAY
     Dates: start: 20070904, end: 20080315
  80. ATENOLOL. [Concomitant]
     Active Substance: ATENOLOL
     Indication: BLOOD PRESSURE ABNORMAL
     Dosage: 100 MG, 1X/DAY
     Dates: start: 20060221, end: 20060619
  81. ATENOLOL. [Concomitant]
     Active Substance: ATENOLOL
     Dosage: 100 MG, 1X/DAY
     Dates: start: 20060627, end: 20060727
  82. DICLOFENAC SOD [Concomitant]
     Active Substance: DICLOFENAC SODIUM
     Indication: INFLAMMATORY PAIN
     Dosage: 75 MG, 2X/DAY
     Dates: start: 20060329, end: 20060419
  83. ANTARA [Concomitant]
     Active Substance: FENOFIBRATE
     Dosage: 130 MG, 1X/DAY
     Dates: start: 20060828, end: 20061021
  84. HYDROCHLOROTHIAZIDE. [Concomitant]
     Active Substance: HYDROCHLOROTHIAZIDE
     Dosage: 25 MG, 1X/DAY
     Dates: start: 20070831, end: 20080404
  85. HYDROCHLOROTHIAZIDE. [Concomitant]
     Active Substance: HYDROCHLOROTHIAZIDE
     Dosage: 25 MG, 1X/DAY
     Dates: start: 20080826, end: 20081113
  86. TRIAMCINOLONE [Concomitant]
     Active Substance: TRIAMCINOLONE
     Dosage: 0.1 %, 2X/DAY
     Dates: start: 20061023, end: 20061112
  87. AMLODIPINE [Concomitant]
     Active Substance: AMLODIPINE BESYLATE
     Dosage: 10 MG, 1X/DAY
     Dates: start: 20080327, end: 20080427
  88. GFN/ PHENYLEPHRINE [Concomitant]
     Indication: NASAL CONGESTION

REACTIONS (1)
  - Chronic kidney disease [Not Recovered/Not Resolved]
